FAERS Safety Report 16882806 (Version 1)
Quarter: 2019Q4

REPORT INFORMATION
  Report Type: Spontaneous
  Country: CZ (occurrence: CZ)
  Receive Date: 20191003
  Receipt Date: 20191003
  Transmission Date: 20200122
  Serious: Yes (Other)
  Sender: FDA-Public Use
  Company Number: CZ-AUROBINDO-AUR-APL-2019-063812

PATIENT

DRUGS (2)
  1. LEVETIRACETAM. [Suspect]
     Active Substance: LEVETIRACETAM
     Indication: PARTIAL SEIZURES
     Dosage: 2000 MILLIGRAM, ONCE A DAY
     Route: 065
  2. LAMOTRIGINE. [Suspect]
     Active Substance: LAMOTRIGINE
     Indication: PARTIAL SEIZURES
     Dosage: 100 MILLIGRAM, ONCE A DAY
     Route: 065

REACTIONS (5)
  - Drug withdrawal convulsions [Unknown]
  - Generalised tonic-clonic seizure [Unknown]
  - Dermatitis atopic [Unknown]
  - Drug ineffective [Unknown]
  - Condition aggravated [Unknown]
